FAERS Safety Report 5147137-X (Version None)
Quarter: 2006Q4

REPORT INFORMATION
  Report Type: 
  Country: None (occurrence: None)
  Receive Date: 20061103
  Receipt Date: 20061002
  Transmission Date: 20070319
  Serious: Yes (Disabling)
  Sender: FDA-Public Use
  Company Number: E2020-00534-SPO-GB

PATIENT
  Age: 87 Year
  Sex: Female

DRUGS (11)
  1. ARICEPT [Suspect]
     Indication: DELUSIONAL DISORDER, PERSECUTORY TYPE
     Dosage: 5 MG, 1 IN 1 D, ORAL
     Route: 048
     Dates: start: 20060914, end: 20060901
  2. ARICEPT [Suspect]
     Indication: DEMENTIA ALZHEIMER'S TYPE
     Dosage: 5 MG, 1 IN 1 D, ORAL
     Route: 048
     Dates: start: 20060914, end: 20060901
  3. ARICEPT [Suspect]
     Indication: VASCULAR DEMENTIA
     Dosage: 5 MG, 1 IN 1 D, ORAL
     Route: 048
     Dates: start: 20060914, end: 20060901
  4. MONOMAX SR (ISOSORBIDE MONONITRATE) [Concomitant]
  5. ASPIRIN [Concomitant]
  6. CLOPIDOGREL [Concomitant]
  7. CITALOPRAM HYDROBROMIDE [Concomitant]
  8. TEMAZEPAM [Concomitant]
  9. CO-DYDRAMOL (PARAMOL-118) [Concomitant]
  10. SENNA (SENNA) [Concomitant]
  11. LACTULOSE [Concomitant]

REACTIONS (3)
  - CONDITION AGGRAVATED [None]
  - DELUSIONAL DISORDER, PERSECUTORY TYPE [None]
  - MEMORY IMPAIRMENT [None]
